FAERS Safety Report 4374932-7 (Version None)
Quarter: 2004Q2

REPORT INFORMATION
  Report Type: 
  Country: None (occurrence: None)
  Receive Date: 20040609
  Receipt Date: 20040603
  Transmission Date: 20050107
  Serious: Yes (Hospitalization)
  Sender: FDA-Public Use
  Company Number: US-BRISTOL-MYERS SQUIBB COMPANY-12604989

PATIENT
  Age: 66 Year
  Sex: Female

DRUGS (1)
  1. EXCEDRIN (MIGRAINE) [Suspect]
     Indication: HEADACHE
     Dosage: DOSE VALUE:  2 TO 4 DOSAGE FORM
     Route: 048
     Dates: start: 19910101

REACTIONS (2)
  - ANXIETY [None]
  - MEDICATION ERROR [None]
